FAERS Safety Report 9420540 (Version 1)
Quarter: 2013Q3

REPORT INFORMATION
  Report Type: Spontaneous
  Country: US (occurrence: US)
  Receive Date: 20130725
  Receipt Date: 20130725
  Transmission Date: 20140515
  Serious: No
  Sender: FDA-Public Use
  Company Number: US-ABBOTT-13P-163-1104444-00

PATIENT
  Sex: Female
  Weight: 51.3 kg

DRUGS (6)
  1. SYNTHROID [Suspect]
     Indication: HYPOTHYROIDISM
     Dates: start: 1979, end: 2013
  2. SYNTHROID [Suspect]
     Indication: HYPOTHYROIDISM
     Dates: start: 2013, end: 2013
  3. SYNTHROID [Suspect]
     Indication: HYPOTHYROIDISM
  4. FORTAYO [Concomitant]
     Indication: PRODUCT USED FOR UNKNOWN INDICATION
  5. DEXALANT [Concomitant]
     Indication: PRODUCT USED FOR UNKNOWN INDICATION
  6. AVISTA [Concomitant]
     Indication: PRODUCT USED FOR UNKNOWN INDICATION

REACTIONS (2)
  - Fatigue [Recovered/Resolved]
  - Thyroid function test abnormal [Recovered/Resolved]
